FAERS Safety Report 18845617 (Version 1)
Quarter: 2021Q1

REPORT INFORMATION
  Report Type: Report from Study
  Country: US (occurrence: US)
  Receive Date: 20210203
  Receipt Date: 20210203
  Transmission Date: 20210419
  Serious: Yes (Hospitalization)
  Sender: FDA-Public Use
  Company Number: US-EXELIXIS-CABO-20031101

PATIENT
  Age: 85 Year
  Sex: Male

DRUGS (2)
  1. CABOMETYX [Suspect]
     Active Substance: CABOZANTINIB S-MALATE
     Indication: RENAL CELL CARCINOMA
     Dosage: 60 MG, QD
     Route: 048
     Dates: start: 20200626, end: 20200715
  2. CABOMETYX [Suspect]
     Active Substance: CABOZANTINIB S-MALATE
     Dosage: 40 MG, QD
     Route: 048
     Dates: start: 20200809

REACTIONS (15)
  - Hypersomnia [Unknown]
  - Dehydration [Unknown]
  - Decreased appetite [Unknown]
  - Dysgeusia [Unknown]
  - Diarrhoea [Unknown]
  - Pruritus [Unknown]
  - Erythema [Unknown]
  - Abdominal pain upper [Unknown]
  - Fatigue [Unknown]
  - Rash [Unknown]
  - Asthenia [Unknown]
  - Nausea [Unknown]
  - Malignant neoplasm progression [Unknown]
  - Dysphonia [Unknown]
  - Arthralgia [Unknown]

NARRATIVE: CASE EVENT DATE: 202006
